FAERS Safety Report 7726031-1 (Version None)
Quarter: 2011Q3

REPORT INFORMATION
  Report Type: 
  Country: None (occurrence: None)
  Receive Date: 20110902
  Receipt Date: 20110825
  Transmission Date: 20111222
  Serious: Yes (Hospitalization)
  Sender: FDA-Public Use
  Company Number: JP-ROCHE-778032

PATIENT
  Sex: Female
  Weight: 45 kg

DRUGS (18)
  1. ACTONEL [Concomitant]
     Route: 048
     Dates: start: 20060322
  2. HOCHU-EKKI-TO [Concomitant]
     Dosage: FORM: PERORAL LIQUID PREPARATION
     Route: 048
     Dates: start: 19991020
  3. RHEUMATREX [Concomitant]
     Route: 048
     Dates: start: 20000405, end: 20100303
  4. RHEUMATREX [Concomitant]
     Route: 048
     Dates: start: 20100304
  5. PREDNISOLONE [Concomitant]
     Route: 048
     Dates: start: 19981006, end: 20100329
  6. ALOSENN [Concomitant]
     Route: 048
     Dates: start: 19991105
  7. CELECOXIB [Concomitant]
     Route: 048
     Dates: start: 20101109
  8. SLOW-K [Concomitant]
     Route: 048
     Dates: start: 19990203
  9. MEXITIL [Concomitant]
     Route: 048
     Dates: start: 20070416
  10. CEVIMELINE HYDROCHLORIDE [Concomitant]
     Route: 048
     Dates: start: 20110202
  11. ACTEMRA [Suspect]
     Indication: RHEUMATOID ARTHRITIS
     Route: 041
     Dates: start: 20110215, end: 20110215
  12. PREDNISOLONE [Concomitant]
     Route: 048
     Dates: start: 20110104
  13. GASMOTIN [Concomitant]
     Route: 048
     Dates: start: 20080606
  14. RIZE [Concomitant]
     Route: 048
     Dates: start: 20030516
  15. PREDNISOLONE [Concomitant]
     Route: 048
     Dates: start: 20100330, end: 20110103
  16. TRICHLORMETHIAZIDE [Concomitant]
     Route: 048
     Dates: start: 19990609
  17. RABEPRAZOLE SODIUM [Concomitant]
     Route: 048
     Dates: start: 20030516
  18. ZOLPIDEM [Concomitant]
     Route: 048
     Dates: start: 20040305

REACTIONS (1)
  - PANCREATITIS ACUTE [None]
